FAERS Safety Report 9349754 (Version 2)
Quarter: 2013Q2

REPORT INFORMATION
  Report Type: Spontaneous
  Country: GB (occurrence: None)
  Receive Date: 20130611
  Receipt Date: 20130626
  Transmission Date: 20140414
  Serious: Yes (Other)
  Sender: FDA-Public Use
  Company Number: 1743845

PATIENT
  Age: 2 Year
  Sex: Male

DRUGS (5)
  1. METHOTREXATE [Suspect]
     Indication: JUVENILE IDIOPATHIC ARTHRITIS
     Dosage: 1 WEEK
     Route: 058
     Dates: start: 20030601, end: 20040129
  2. PIROXICAM [Suspect]
     Indication: JUVENILE IDIOPATHIC ARTHRITIS
     Route: 048
  3. IBUPROFEN [Suspect]
     Indication: JUVENILE IDIOPATHIC ARTHRITIS
     Route: 048
  4. IRON [Concomitant]
  5. TRIAMCINOLONE [Concomitant]

REACTIONS (4)
  - Spondylitis [None]
  - Musculoskeletal stiffness [None]
  - Alanine aminotransferase increased [None]
  - Hepatotoxicity [None]
